FAERS Safety Report 22074592 (Version 1)
Quarter: 2023Q1

REPORT INFORMATION
  Report Type: Spontaneous
  Country: US (occurrence: US)
  Receive Date: 20230308
  Receipt Date: 20230308
  Transmission Date: 20230418
  Serious: No
  Sender: FDA-Public Use
  Company Number: US-JNJFOC-20230247056

PATIENT
  Sex: Female

DRUGS (1)
  1. MENS ROGAINE EXTRA STRENGTH [Suspect]
     Active Substance: MINOXIDIL
     Indication: Hair growth abnormal
     Dosage: DOSE: 1 ML ONCE DAILY. ONCE OR TWICE A WEEK.
     Route: 061
     Dates: start: 2022

REACTIONS (4)
  - Heart rate increased [Unknown]
  - Application site pruritus [Unknown]
  - Product use issue [Unknown]
  - Intentional product misuse [Unknown]

NARRATIVE: CASE EVENT DATE: 20220101
